FAERS Safety Report 16703888 (Version 7)
Quarter: 2020Q3

REPORT INFORMATION
  Report Type: Report from Study
  Country: US (occurrence: US)
  Receive Date: 20190814
  Receipt Date: 20200715
  Transmission Date: 20201102
  Serious: No
  Sender: FDA-Public Use
  Company Number: PHEH2019US032744

PATIENT
  Age: 71 Year
  Sex: Female

DRUGS (7)
  1. MAYZENT [Suspect]
     Active Substance: SIPONIMOD
     Dosage: 0.75 MG, UNK
     Route: 048
  2. MAYZENT [Suspect]
     Active Substance: SIPONIMOD
     Dosage: 0.5 MG, UNK
     Route: 048
  3. MAYZENT [Suspect]
     Active Substance: SIPONIMOD
     Dosage: 1 MG
     Route: 048
     Dates: start: 20190919
  4. MAYZENT [Suspect]
     Active Substance: SIPONIMOD
     Indication: RELAPSING-REMITTING MULTIPLE SCLEROSIS
     Dosage: 4 MG, QD
     Route: 048
  5. MAYZENT [Suspect]
     Active Substance: SIPONIMOD
     Indication: MULTIPLE SCLEROSIS
     Dosage: 1 MG, QD
     Route: 048
     Dates: start: 20190623
  6. MAYZENT [Suspect]
     Active Substance: SIPONIMOD
     Dosage: 0.25 MG, UNK
     Route: 048
  7. MAYZENT [Suspect]
     Active Substance: SIPONIMOD
     Indication: SECONDARY PROGRESSIVE MULTIPLE SCLEROSIS
     Dosage: 1 MG, UNK
     Route: 065

REACTIONS (8)
  - Thinking abnormal [Recovering/Resolving]
  - Feeling abnormal [Recovered/Resolved]
  - Balance disorder [Unknown]
  - Drug intolerance [Unknown]
  - Asthenia [Unknown]
  - Prescribed underdose [Unknown]
  - Dizziness [Unknown]
  - Lethargy [Unknown]

NARRATIVE: CASE EVENT DATE: 20190729
